FAERS Safety Report 12892894 (Version 1)
Quarter: 2016Q4

REPORT INFORMATION
  Report Type: Spontaneous
  Country: US (occurrence: US)
  Receive Date: 20161027
  Receipt Date: 20161027
  Transmission Date: 20170207
  Serious: Yes (Other)
  Sender: FDA-Public Use
  Company Number: None

PATIENT
  Age: 46 Year
  Sex: Female

DRUGS (4)
  1. VIVITROL [Suspect]
     Active Substance: NALTREXONE
     Indication: ALCOHOL POISONING
     Dosage: 380 MG EVERY MONTH IN THE MUSCLE
     Route: 030
     Dates: start: 20151028
  2. MULTIPLE VITAMIN [Concomitant]
     Active Substance: VITAMINS
  3. TRIAMT/HCTZ [Concomitant]
     Active Substance: HYDROCHLOROTHIAZIDE\TRIAMTERENE
  4. VIVITROL [Suspect]
     Active Substance: NALTREXONE
     Indication: ALCOHOLISM
     Dosage: 380 MG EVERY MONTH IN THE MUSCLE
     Route: 030
     Dates: start: 20151028

REACTIONS (1)
  - Breast cancer [None]

NARRATIVE: CASE EVENT DATE: 20160927
